FAERS Safety Report 12282703 (Version 1)
Quarter: 2016Q2

REPORT INFORMATION
  Report Type: Spontaneous
  Country: US (occurrence: US)
  Receive Date: 20160419
  Receipt Date: 20160419
  Transmission Date: 20160815
  Serious: No
  Sender: FDA-Public Use
  Company Number: US-ELI_LILLY_AND_COMPANY-US201604005901

PATIENT
  Sex: Female

DRUGS (2)
  1. DULOXETINE HYDROCHLORIDE. [Suspect]
     Active Substance: DULOXETINE HYDROCHLORIDE
     Indication: ANXIETY
  2. DULOXETINE HYDROCHLORIDE. [Suspect]
     Active Substance: DULOXETINE HYDROCHLORIDE
     Indication: NEUROPATHY PERIPHERAL
     Dosage: 20 MG, QD
     Route: 065
     Dates: start: 20160411

REACTIONS (6)
  - Lip disorder [Unknown]
  - Dry mouth [Unknown]
  - Localised infection [Unknown]
  - Foot deformity [Unknown]
  - Dizziness postural [Unknown]
  - Oral disorder [Unknown]

NARRATIVE: CASE EVENT DATE: 20160411
